FAERS Safety Report 6635155-1 (Version None)
Quarter: 2010Q1

REPORT INFORMATION
  Report Type: 
  Country: None (occurrence: None)
  Receive Date: 20100315
  Receipt Date: 20100310
  Transmission Date: 20100710
  Serious: Yes (Death, Other)
  Sender: FDA-Public Use
  Company Number: PHHY2010FR14580

PATIENT
  Age: 80 Year
  Sex: Male

DRUGS (3)
  1. TASIGNA [Suspect]
     Dosage: 800 MG, BID
     Route: 048
     Dates: start: 20060620
  2. PLAVIX [Concomitant]
  3. KARDEGIC [Concomitant]

REACTIONS (3)
  - ANGINA UNSTABLE [None]
  - ARTERIAL DISORDER [None]
  - DEATH [None]
